FAERS Safety Report 9339934 (Version 1)
Quarter: 2013Q2

REPORT INFORMATION
  Report Type: Spontaneous
  Country: US (occurrence: US)
  Receive Date: 20130610
  Receipt Date: 20130610
  Transmission Date: 20140414
  Serious: Yes (Other)
  Sender: FDA-Public Use
  Company Number: US-BRISTOL-MYERS SQUIBB COMPANY-18959940

PATIENT
  Age: 52 Year
  Sex: Female
  Weight: 62.58 kg

DRUGS (3)
  1. ABILIFY TABS 5 MG [Suspect]
     Indication: BIPOLAR DISORDER
     Dates: start: 20130430
  2. ABILIFY TABS 5 MG [Suspect]
     Indication: DEPRESSION
     Dates: start: 20130430
  3. ABILIFY TABS 5 MG [Suspect]
     Indication: OBSESSIVE-COMPULSIVE DISORDER
     Dates: start: 20130430

REACTIONS (2)
  - Brain injury [Unknown]
  - Dizziness [Unknown]
